FAERS Safety Report 9083191 (Version 1)
Quarter: 2013Q1

REPORT INFORMATION
  Report Type: Report from Study
  Country: US (occurrence: US)
  Receive Date: 20130130
  Receipt Date: 20130130
  Transmission Date: 20140127
  Serious: No
  Sender: FDA-Public Use
  Company Number: US-ABBOTT-12P-163-0976375-00

PATIENT
  Age: 36 Year
  Sex: Female

DRUGS (3)
  1. HUMIRA [Suspect]
     Indication: CROHN^S DISEASE
     Dosage: 160MG LOADING DOSE ON 31 AUG 2012
     Dates: start: 20120831
  2. PREDNISONE [Concomitant]
     Indication: CROHN^S DISEASE
  3. TOPROL [Concomitant]
     Indication: HYPERTENSION
     Dosage: 1 TABLET DAILY

REACTIONS (4)
  - Pruritus [Recovered/Resolved]
  - Paraesthesia [Recovered/Resolved]
  - Hypoaesthesia [Recovered/Resolved]
  - Irritability [Recovered/Resolved]
